FAERS Safety Report 9983095 (Version 1)
Quarter: 2014Q1

REPORT INFORMATION
  Report Type: Report from Study
  Country: US (occurrence: US)
  Receive Date: 20140307
  Receipt Date: 20140307
  Transmission Date: 20141002
  Serious: No
  Sender: FDA-Public Use
  Company Number: US-ABBVIE-13P-163-1176593-00

PATIENT
  Age: 29 Year
  Sex: Female

DRUGS (11)
  1. HUMIRA [Suspect]
     Indication: CROHN^S DISEASE
     Dates: start: 2011
  2. ASACOL [Concomitant]
     Indication: CROHN^S DISEASE
  3. DICYCLOMINE [Concomitant]
     Indication: CROHN^S DISEASE
  4. EFFEXOR [Concomitant]
     Indication: PRODUCT USED FOR UNKNOWN INDICATION
     Dosage: AT BEDTIME
  5. ZANTAC [Concomitant]
     Indication: PRODUCT USED FOR UNKNOWN INDICATION
  6. NEXIUM [Concomitant]
     Indication: PRODUCT USED FOR UNKNOWN INDICATION
  7. LORATIDIN [Concomitant]
     Indication: PRODUCT USED FOR UNKNOWN INDICATION
  8. ENTOCORT [Concomitant]
     Indication: CROHN^S DISEASE
  9. AMITRIPTYLLINE [Concomitant]
     Indication: PRODUCT USED FOR UNKNOWN INDICATION
  10. AZATHIOPRINE [Concomitant]
     Indication: PRODUCT USED FOR UNKNOWN INDICATION
  11. ATENOLOL/HCTZ [Concomitant]
     Indication: HYPERTENSION
     Dosage: 50/25 MG

REACTIONS (1)
  - Burning sensation [Not Recovered/Not Resolved]
